FAERS Safety Report 15974971 (Version 1)
Quarter: 2019Q1

REPORT INFORMATION
  Report Type: Other
  Country: CN (occurrence: CN)
  Receive Date: 20190218
  Receipt Date: 20190218
  Transmission Date: 20190418
  Serious: Yes (Hospitalization)
  Sender: FDA-Public Use
  Company Number: CN-ORCHID HEALTHCARE-2062771

PATIENT
  Age: 33 Year
  Sex: Female

DRUGS (8)
  1. OLANZAPINE. [Suspect]
     Active Substance: OLANZAPINE
     Route: 065
  2. NIU HUANG JIE DU PIAN [Suspect]
     Active Substance: HERBALS
     Route: 065
  3. LAMOTRIGINE. [Suspect]
     Active Substance: LAMOTRIGINE
     Route: 065
  4. LORAZEPAM. [Suspect]
     Active Substance: LORAZEPAM
     Route: 065
  5. PREGABALIN. [Suspect]
     Active Substance: PREGABALIN
     Route: 065
  6. MIRTAZAPINE. [Suspect]
     Active Substance: MIRTAZAPINE
     Route: 065
  7. QUETIAPINE. [Suspect]
     Active Substance: QUETIAPINE
     Route: 065
  8. CLONAZEPAM. [Suspect]
     Active Substance: CLONAZEPAM
     Route: 065

REACTIONS (15)
  - Blood arsenic increased [Recovered/Resolved]
  - Blood pressure increased [Recovered/Resolved]
  - Coma scale abnormal [Recovered/Resolved]
  - Hypokalaemia [Recovered/Resolved]
  - Abdominal pain upper [Recovered/Resolved]
  - Intentional overdose [Unknown]
  - Urine arsenic increased [Recovered/Resolved]
  - Sinus tachycardia [Recovered/Resolved]
  - Heart rate increased [Recovered/Resolved]
  - Suicide attempt [Unknown]
  - Toxicity to various agents [Recovered/Resolved]
  - Vomiting [Recovered/Resolved]
  - Unresponsive to stimuli [Recovered/Resolved]
  - Somnolence [Recovered/Resolved]
  - Leukocytosis [Recovered/Resolved]
